FAERS Safety Report 13512472 (Version 1)
Quarter: 2017Q2

REPORT INFORMATION
  Report Type: Spontaneous
  Country: US (occurrence: US)
  Receive Date: 20170504
  Receipt Date: 20170504
  Transmission Date: 20170830
  Serious: No
  Sender: FDA-Public Use
  Company Number: None

PATIENT
  Age: 45 Year
  Sex: Female

DRUGS (1)
  1. HARVONI [Suspect]
     Active Substance: LEDIPASVIR\SOFOSBUVIR

REACTIONS (9)
  - Fatigue [None]
  - Pain in extremity [None]
  - Neuralgia [None]
  - Headache [None]
  - Feeling abnormal [None]
  - Photopsia [None]
  - Photosensitivity reaction [None]
  - Constipation [None]
  - Vision blurred [None]

NARRATIVE: CASE EVENT DATE: 20170417
